FAERS Safety Report 22006189 (Version 1)
Quarter: 2023Q1

REPORT INFORMATION
  Report Type: Spontaneous
  Country: IT (occurrence: IT)
  Receive Date: 20230217
  Receipt Date: 20230217
  Transmission Date: 20230418
  Serious: Yes (Other)
  Sender: FDA-Public Use
  Company Number: IT-PFIZER INC-PV202300029607

PATIENT
  Age: 61 Year
  Sex: Female

DRUGS (4)
  1. PALBOCICLIB [Suspect]
     Active Substance: PALBOCICLIB
     Indication: Breast cancer
     Dosage: DAILY IN 4-WEEK CYCLES (3 WEEKS OF TREATMENT FOLLOWEDBY 1 WEEK OFF)
     Route: 048
     Dates: start: 201710
  2. PALBOCICLIB [Suspect]
     Active Substance: PALBOCICLIB
     Dosage: 100 MG/DAY FOR3 WEEKS OF TREATMENT FOLLOWED BY 3 WEEKS OFF
  3. PALBOCICLIB [Suspect]
     Active Substance: PALBOCICLIB
     Dosage: 75 MG, 1X/DAY
     Dates: start: 201905
  4. LETROZOLE [Suspect]
     Active Substance: LETROZOLE
     Indication: Breast cancer
     Dosage: 2.5 MG, DAILY

REACTIONS (2)
  - Thrombocytopenia [Unknown]
  - Haematotoxicity [Unknown]
